FAERS Safety Report 4728580-7 (Version None)
Quarter: 2005Q3

REPORT INFORMATION
  Report Type: 
  Country: None (occurrence: None)
  Receive Date: 20050727
  Receipt Date: 20050714
  Transmission Date: 20060218
  Serious: Yes (Other)
  Sender: FDA-Public Use
  Company Number: 2005102299

PATIENT
  Age: 74 Year
  Sex: Female
  Weight: 52.1637 kg

DRUGS (1)
  1. LIPITOR [Suspect]
     Indication: BLOOD CHOLESTEROL INCREASED
     Dosage: 10 MG (10 MG, 1 IN 1 D),ORAL
     Route: 048

REACTIONS (5)
  - BODY HEIGHT DECREASED [None]
  - EAR INFECTION [None]
  - GASTRIC DISORDER [None]
  - HEADACHE [None]
  - PAIN IN EXTREMITY [None]
